FAERS Safety Report 23871628 (Version 1)
Quarter: 2024Q2

REPORT INFORMATION
  Report Type: Spontaneous
  Country: US (occurrence: US)
  Receive Date: 20240519
  Receipt Date: 20240519
  Transmission Date: 20240715
  Serious: Yes (Hospitalization, Other)
  Sender: FDA-Public Use
  Company Number: US-BEH-2024172155

PATIENT
  Sex: Female

DRUGS (1)
  1. PRIVIGEN [Suspect]
     Active Substance: HUMAN IMMUNOGLOBULIN G
     Indication: Hypogammaglobulinaemia
     Dosage: 40 G, QMT (EVERY 4 WEEKS)
     Route: 042
     Dates: start: 201612

REACTIONS (2)
  - Appendicitis [Not Recovered/Not Resolved]
  - Pyrexia [Not Recovered/Not Resolved]
